FAERS Safety Report 23603629 (Version 1)
Quarter: 2024Q1

REPORT INFORMATION
  Report Type: Other
  Country: CA (occurrence: CA)
  Receive Date: 20240307
  Receipt Date: 20240307
  Transmission Date: 20240410
  Serious: Yes (Death, Hospitalization, Other)
  Sender: FDA-Public Use
  Company Number: CA-GLENMARK PHARMACEUTICALS-2023GMK081577

PATIENT

DRUGS (21)
  1. GABAPENTIN [Suspect]
     Active Substance: GABAPENTIN
     Indication: Cancer pain
     Dosage: 300 MILLIGRAM
     Route: 065
  2. GABAPENTIN [Suspect]
     Active Substance: GABAPENTIN
     Indication: Breast cancer metastatic
     Dosage: 900 MILLIGRAM 2 EVERY 1 DAYS
     Route: 065
  3. GABAPENTIN [Suspect]
     Active Substance: GABAPENTIN
     Dosage: 900 MILLIGRAM 1 EVERY 12 HOURS
     Route: 065
  4. DEXAMETHASONE [Suspect]
     Active Substance: DEXAMETHASONE
     Indication: Cancer pain
     Dosage: 4 MILLIGRAM 3 EVERY 1 DAYS
     Route: 065
  5. DEXAMETHASONE [Suspect]
     Active Substance: DEXAMETHASONE
     Indication: Breast cancer metastatic
     Dosage: 4 MILLIGRAM 1 EVERY 8 HOURS
     Route: 065
  6. DIAZEPAM [Suspect]
     Active Substance: DIAZEPAM
     Indication: Cancer pain
     Dosage: 5 MILLIGRAM
     Route: 065
  7. DIAZEPAM [Suspect]
     Active Substance: DIAZEPAM
     Indication: Breast cancer metastatic
     Dosage: 5 MILLIGRAM 1 EVERY 8 HOURS
     Route: 065
  8. METHADONE [Suspect]
     Active Substance: METHADONE HYDROCHLORIDE
     Indication: Cancer pain
     Dosage: 5 MILLIGRAM
     Route: 065
  9. METHADONE [Suspect]
     Active Substance: METHADONE HYDROCHLORIDE
     Dosage: 15 MILLIGRAM  3 EVERY 1 DAYS
     Route: 065
  10. METHADONE [Suspect]
     Active Substance: METHADONE HYDROCHLORIDE
     Dosage: 10 MILLIGRAM 2 EVERY 1 DAYS
     Route: 065
  11. MORPHINE SULFATE [Suspect]
     Active Substance: MORPHINE SULFATE
     Indication: Cancer pain
     Dosage: 20 MILLIGRAM
     Route: 058
  12. MORPHINE SULFATE [Suspect]
     Active Substance: MORPHINE SULFATE
     Dosage: UNK
     Route: 065
  13. MORPHINE [Suspect]
     Active Substance: MORPHINE
     Indication: Breast cancer metastatic
     Dosage: UNK
     Route: 058
  14. METHADOSE SUGAR-FREE [Suspect]
     Active Substance: METHADONE HYDROCHLORIDE
     Indication: Cancer pain
     Dosage: 10 MILLIGRAM 1 EVERY 12 HOURS, (FORMULATION: SOLUTION ORAL)
     Route: 065
  15. METHADOSE SUGAR-FREE [Suspect]
     Active Substance: METHADONE HYDROCHLORIDE
     Indication: Breast cancer metastatic
     Dosage: 15 MILLIGRAM 1 EVERY 8 HOURS, (FORMULATION: SOLUTION ORAL)
     Route: 065
  16. METHADOSE SUGAR-FREE [Suspect]
     Active Substance: METHADONE HYDROCHLORIDE
     Dosage: 5 MILLIGRAM 1 EVERY 1 DAY, (FORMULATION: SOLUTION ORAL)
     Route: 065
  17. METHADOSE SUGAR-FREE [Suspect]
     Active Substance: METHADONE HYDROCHLORIDE
     Indication: Cancer pain
     Dosage: 5 MILLIGRAM
     Route: 065
  18. METHADOSE SUGAR-FREE [Suspect]
     Active Substance: METHADONE HYDROCHLORIDE
     Indication: Breast cancer metastatic
     Dosage: 15 MILLIGRAM 1 EVERY 8 HOURS
     Route: 065
  19. METHADOSE SUGAR-FREE [Suspect]
     Active Substance: METHADONE HYDROCHLORIDE
     Dosage: 10 MILLIGRAM 1 EVERY 12 HOURS
     Route: 065
  20. METHADOSE SUGAR-FREE [Suspect]
     Active Substance: METHADONE HYDROCHLORIDE
     Dosage: 5 MILLIGRAM, 1 EVERY 1 DAY
     Route: 065
  21. MORPHINE [Concomitant]
     Active Substance: MORPHINE
     Indication: Cancer pain
     Dosage: UNK
     Route: 058

REACTIONS (7)
  - Phyllodes tumour [Fatal]
  - Disease progression [Fatal]
  - Musculoskeletal chest pain [Fatal]
  - Off label use [Fatal]
  - Drug ineffective [Unknown]
  - Drug ineffective for unapproved indication [Fatal]
  - Product use in unapproved indication [Unknown]
